FAERS Safety Report 21018697 (Version 5)
Quarter: 2022Q4

REPORT INFORMATION
  Report Type: Report from Study
  Country: US (occurrence: US)
  Receive Date: 20220628
  Receipt Date: 20221117
  Transmission Date: 20230112
  Serious: Yes (Other)
  Sender: FDA-Public Use
  Company Number: US-NOVARTISPH-NVSC2022US146118

PATIENT
  Sex: Male

DRUGS (1)
  1. ENTRESTO [Suspect]
     Active Substance: SACUBITRIL\VALSARTAN
     Indication: Product used for unknown indication
     Dosage: 1 DOSAGE FORM
     Route: 065

REACTIONS (10)
  - Prostatic abscess [Unknown]
  - Haemorrhage [Unknown]
  - Urinary tract infection [Unknown]
  - Depression [Unknown]
  - Incontinence [Unknown]
  - Weight increased [Recovering/Resolving]
  - Bowel movement irregularity [Unknown]
  - Dizziness [Unknown]
  - Hypotension [Unknown]
  - Cough [Unknown]
